FAERS Safety Report 24279093 (Version 1)
Quarter: 2024Q3

REPORT INFORMATION
  Report Type: Spontaneous
  Country: PL (occurrence: PL)
  Receive Date: 20240903
  Receipt Date: 20240903
  Transmission Date: 20241016
  Serious: Yes (Other)
  Sender: TEVA
  Company Number: None

PATIENT
  Age: 62 Year
  Sex: Female

DRUGS (1)
  1. ZOLEDRONIC ACID [Suspect]
     Active Substance: ZOLEDRONIC ACID
     Indication: Osteoporosis
     Dosage: ZOLEDRONIC ACID ACTAVIS 4 MG/5 ML
     Route: 042
     Dates: start: 201908

REACTIONS (12)
  - Chest pain [Unknown]
  - Influenza like illness [Unknown]
  - Myalgia [Unknown]
  - Arthralgia [Unknown]
  - Ocular hyperaemia [Unknown]
  - Facial pain [Unknown]
  - Iritis [Unknown]
  - Tremor [Unknown]
  - Eye pain [Unknown]
  - Heart rate irregular [Unknown]
  - Bone pain [Unknown]
  - Chills [Unknown]
